FAERS Safety Report 9206138 (Version 1)
Quarter: 2013Q1

REPORT INFORMATION
  Report Type: Spontaneous
  Country: US (occurrence: None)
  Receive Date: 20120731
  Receipt Date: 20120731
  Transmission Date: 20140127
  Serious: No
  Sender: FDA-Public Use
  Company Number: US201201001494

PATIENT
  Sex: Female
  Weight: 129.7 kg

DRUGS (9)
  1. BYETTA [Suspect]
     Route: 058
  2. AVANDIA (ROSIGLITAZONE MALEATE) [Concomitant]
  3. METFORMIN (METFORMIN) [Concomitant]
  4. HUMALOG MIX (INSULIN LISPRO, INSULIN LISPRO PROTAMINE SUSPENSION) [Concomitant]
  5. OMEPRAZOLE (OMEPRAZOLE) [Concomitant]
  6. LORAZ (LORAZEPAM) [Concomitant]
  7. LOTREL (AMLODIPINE BESILATE, BENAZEPRIL HYDROCHLORIDE) [Concomitant]
  8. AMLODIPINE BESYLATE AND BENAZEPRIL HCL (AMLODIPINE BESILATE, BENAZEPRIL HYDROCHLORIDE) [Concomitant]
  9. GLIMEPIRIDE (GLIMEPIRIDE) [Concomitant]

REACTIONS (5)
  - Blood glucose increased [None]
  - Formication [None]
  - Malaise [None]
  - Rash pruritic [None]
  - Headache [None]
